FAERS Safety Report 10016643 (Version 2)
Quarter: 2014Q2

REPORT INFORMATION
  Report Type: Report from Study
  Country: US (occurrence: US)
  Receive Date: 20140317
  Receipt Date: 20140408
  Transmission Date: 20141212
  Serious: Yes (Hospitalization, Other)
  Sender: FDA-Public Use
  Company Number: US-GILEAD-2014-0096998

PATIENT
  Age: 26 Year
  Sex: Male

DRUGS (19)
  1. EMTRICITABINE/TENOFOVIR DISOPROXIL FUMARATE [Suspect]
     Indication: HIV INFECTION
     Dosage: 1 UNK, UNK
     Route: 048
     Dates: start: 20070511, end: 20070514
  2. EMTRICITABINE/TENOFOVIR DISOPROXIL FUMARATE [Suspect]
     Dosage: 1 DF, QD
     Route: 048
     Dates: start: 20070110, end: 20070509
  3. EFAVIRENZ [Suspect]
     Indication: HIV INFECTION
     Dosage: 600 UNK, UNK
     Route: 048
     Dates: start: 20070511, end: 20070513
  4. EFAVIRENZ [Suspect]
     Dosage: 600 MG, QD
     Route: 048
     Dates: start: 20070110, end: 20070509
  5. PLACEBO [Suspect]
     Indication: HIV INFECTION
     Dosage: 1 DF, QD
     Route: 048
     Dates: start: 20070110, end: 20070509
  6. PLACEBO [Suspect]
     Dosage: 1 UNK, UNK
     Route: 048
     Dates: start: 20070511, end: 20070514
  7. ABILIFY [Concomitant]
     Dosage: 5 MG, QD
     Route: 048
     Dates: start: 20070420
  8. NASONEX [Concomitant]
     Dosage: 100 ?G, QD
     Route: 065
     Dates: start: 20070102
  9. PATANOL [Concomitant]
     Dosage: 4 UNK, UNK
     Dates: start: 20070424
  10. PARACETAMOL + CAFFEINE [Concomitant]
     Dosage: UNK
     Dates: start: 20070113
  11. ACYCLOVIR                          /00587301/ [Concomitant]
     Dosage: 800 MG, QD
     Route: 048
     Dates: start: 20070207
  12. CITALOPRAM [Concomitant]
     Dosage: 40 MG, QD
     Dates: start: 20070418
  13. CLOTRIMAZOLE [Concomitant]
     Dosage: 1 %, UNK
     Dates: start: 20070207
  14. GUAIFENESIN [Concomitant]
     Dosage: UNK
     Dates: start: 20070102
  15. HYDROCORTISONE ACETATE [Concomitant]
     Dosage: 1 %, UNK
     Dates: start: 20070109
  16. IPRATROPIUM BROMIDE [Concomitant]
     Dosage: 4 UNK, UNK
     Dates: start: 20070424
  17. LORATADINE [Concomitant]
     Dosage: 10 MG, QD
     Dates: start: 20070124
  18. LORAZEPAM [Concomitant]
     Dosage: 1 MG, QD
     Dates: start: 20070124
  19. OFLOXACIN [Concomitant]
     Dosage: UNK
     Dates: start: 20070504

REACTIONS (1)
  - Schizoaffective disorder [Not Recovered/Not Resolved]
